FAERS Safety Report 21249322 (Version 1)
Quarter: 2022Q3

REPORT INFORMATION
  Report Type: Spontaneous
  Country: TW (occurrence: TW)
  Receive Date: 20220824
  Receipt Date: 20220824
  Transmission Date: 20221026
  Serious: Yes (Other)
  Sender: FDA-Public Use
  Company Number: TW-BAYER-2022A118601

PATIENT

DRUGS (2)
  1. STIVARGA [Suspect]
     Active Substance: REGORAFENIB
     Dosage: UNK
  2. NIVOLUMAB [Concomitant]
     Active Substance: NIVOLUMAB

REACTIONS (2)
  - Metastases to spinal cord [None]
  - Metastases to central nervous system [None]
